FAERS Safety Report 4792505-9 (Version None)
Quarter: 2005Q4

REPORT INFORMATION
  Report Type: 
  Country: None (occurrence: None)
  Receive Date: 20051010
  Receipt Date: 20050930
  Transmission Date: 20060501
  Serious: Yes (Other)
  Sender: FDA-Public Use
  Company Number: US-JNJFOC-20051000682

PATIENT
  Age: 28 Year
  Sex: Male
  Weight: 84.37 kg

DRUGS (3)
  1. RISPERDAL [Suspect]
     Route: 048
     Dates: start: 20040901
  2. COGENTIN [Concomitant]
  3. ZOLOFT [Concomitant]

REACTIONS (3)
  - FALL [None]
  - LOSS OF CONSCIOUSNESS [None]
  - TREMOR [None]
